FAERS Safety Report 5828343-5 (Version None)
Quarter: 2008Q3

REPORT INFORMATION
  Report Type: 
  Country: None (occurrence: None)
  Receive Date: 20080729
  Receipt Date: 20080729
  Transmission Date: 20090109
  Serious: Yes (Hospitalization)
  Sender: FDA-Public Use
  Company Number: None

PATIENT
  Age: 64 Year
  Sex: Male
  Weight: 119.18 kg

DRUGS (2)
  1. RITUXIMAB [Suspect]
     Dosage: 893 MG IV
     Route: 042
     Dates: start: 20080212, end: 20080212
  2. CYCLOPHOSPHAMIDE [Suspect]
     Dosage: 1785 MG IV
     Route: 042
     Dates: start: 20080212, end: 20080212

REACTIONS (4)
  - ABDOMINAL PAIN [None]
  - DIARRHOEA [None]
  - FATIGUE [None]
  - FEBRILE NEUTROPENIA [None]
